FAERS Safety Report 6469993-5 (Version None)
Quarter: 2009Q4

REPORT INFORMATION
  Report Type: 
  Country: None (occurrence: None)
  Receive Date: 20091203
  Receipt Date: 20080204
  Transmission Date: 20100525
  Serious: Yes (Hospitalization)
  Sender: FDA-Public Use
  Company Number: US-ELI_LILLY_AND_COMPANY-US200711004667

PATIENT
  Age: 60 Year
  Sex: Female
  Weight: 87.075 kg

DRUGS (5)
  1. BYETTA [Suspect]
     Indication: TYPE 2 DIABETES MELLITUS
     Dosage: 5 MG, 2/D
     Route: 058
     Dates: start: 20061201, end: 20070101
  2. BYETTA [Suspect]
     Dosage: 10 UG, 2/D
     Route: 058
     Dates: start: 20070101
  3. LISINOPRIL [Concomitant]
     Indication: BLOOD PRESSURE
     Dosage: 20 MG, DAILY (1/D)
  4. HYDROCHLOROTHIAZIDE [Concomitant]
     Indication: BLOOD PRESSURE
     Dosage: 25 MG, DAILY (1/D)
  5. VITAMIN B-12 [Concomitant]
     Indication: HEPATITIS C

REACTIONS (5)
  - HEADACHE [None]
  - LUMBAR SPINAL STENOSIS [None]
  - NAUSEA [None]
  - POSTOPERATIVE WOUND INFECTION [None]
  - SPONDYLOLISTHESIS [None]
